FAERS Safety Report 10162730 (Version 1)
Quarter: 2014Q2

REPORT INFORMATION
  Report Type: Spontaneous
  Country: US (occurrence: US)
  Receive Date: 20140509
  Receipt Date: 20140509
  Transmission Date: 20141212
  Serious: Yes (Other)
  Sender: FDA-Public Use
  Company Number: US-PFIZER INC-2014126027

PATIENT
  Age: 61 Year
  Sex: Female
  Weight: 77.1 kg

DRUGS (5)
  1. SPIRONOLACTONE [Suspect]
     Indication: HYPERTENSION
     Dosage: 25 MG TO 30 MG, DAILY
     Dates: start: 2006
  2. SPIRONOLACTONE [Suspect]
     Dosage: UNK, 3X/WEEK
  3. DIAZEM [Concomitant]
     Dosage: UNK
  4. ASPIRIN [Concomitant]
     Dosage: UNK
  5. ATENOLOL [Concomitant]
     Indication: HYPERTENSION
     Dosage: UNK

REACTIONS (3)
  - Intentional product misuse [Unknown]
  - Temporal lobe epilepsy [Recovered/Resolved]
  - Dizziness [Unknown]
